FAERS Safety Report 6923463-6 (Version None)
Quarter: 2010Q3

REPORT INFORMATION
  Report Type: 
  Country: None (occurrence: None)
  Receive Date: 20100813
  Receipt Date: 20100803
  Transmission Date: 20110219
  Serious: Yes (Hospitalization)
  Sender: FDA-Public Use
  Company Number: JP-PFIZER INC-2010098522

PATIENT
  Age: 66 Year
  Sex: Male

DRUGS (11)
  1. SEIBULE [Suspect]
     Indication: TYPE 2 DIABETES MELLITUS
     Dosage: 25 MG, 3X/DAY
     Route: 048
     Dates: end: 20100616
  2. SEIBULE [Suspect]
     Dosage: 50 MG, 3X/DAY
     Route: 048
     Dates: start: 20100617, end: 20100705
  3. LAMISIL [Suspect]
     Indication: ONYCHOMYCOSIS
     Dosage: UNK
     Route: 061
     Dates: start: 20100622, end: 20100705
  4. CRESTOR [Concomitant]
     Route: 048
  5. VALSARTAN [Concomitant]
     Route: 048
  6. NORVASC [Concomitant]
     Route: 048
  7. ASPIRIN [Concomitant]
     Route: 048
  8. AMARYL [Concomitant]
     Dosage: UNK
     Route: 048
     Dates: end: 20100621
  9. MELBIN [Concomitant]
     Dosage: 500 MG, UNK
     Route: 048
     Dates: end: 20100621
  10. NOVORAPID [Concomitant]
     Dosage: UNK
     Route: 058
     Dates: start: 20100624, end: 20100701
  11. LANTUS [Concomitant]
     Dosage: UNK
     Route: 058
     Dates: start: 20100624

REACTIONS (1)
  - HEPATIC FUNCTION ABNORMAL [None]
